FAERS Safety Report 13135786 (Version 12)
Quarter: 2019Q1

REPORT INFORMATION
  Report Type: Report from Study
  Country: US (occurrence: US)
  Receive Date: 20170120
  Receipt Date: 20190123
  Transmission Date: 20190417
  Serious: Yes (Hospitalization)
  Sender: FDA-Public Use
  Company Number: US-ACTELION-A-NJ2016-146553

PATIENT
  Age: 62 Year
  Sex: Female
  Weight: 72.56 kg

DRUGS (6)
  1. VELETRI [Suspect]
     Active Substance: EPOPROSTENOL
     Dosage: 20 NG/KG, PER MIN
     Route: 042
  2. SILDENAFIL CITRATE. [Concomitant]
     Active Substance: SILDENAFIL CITRATE
     Dosage: 20 MG, TID
     Dates: start: 201612
  3. VELETRI [Suspect]
     Active Substance: EPOPROSTENOL
     Indication: PORTOPULMONARY HYPERTENSION
     Dosage: 16 NG/KG, PER MIN
     Route: 042
     Dates: start: 20161118
  4. VELETRI [Suspect]
     Active Substance: EPOPROSTENOL
     Dosage: 18 NG/KG, PER MIN
     Route: 042
  5. LETAIRIS [Concomitant]
     Active Substance: AMBRISENTAN
     Dosage: 10 MG, QD
     Dates: start: 201612
  6. WARFARIN [Concomitant]
     Active Substance: WARFARIN

REACTIONS (30)
  - Abdominal pain upper [Unknown]
  - Oxygen saturation decreased [Unknown]
  - Head injury [Recovered/Resolved]
  - Bronchiolitis [Recovering/Resolving]
  - Cough [Recovering/Resolving]
  - Dyspnoea [Not Recovered/Not Resolved]
  - Catheter site erythema [Unknown]
  - Weight decreased [Unknown]
  - Fatigue [Unknown]
  - Supraventricular tachycardia [Recovered/Resolved]
  - Nausea [Recovering/Resolving]
  - Vomiting [Recovering/Resolving]
  - Hypotension [Unknown]
  - Pneumonia [Unknown]
  - Headache [Unknown]
  - Arthralgia [Unknown]
  - Catheter site pruritus [Unknown]
  - Fall [Recovered/Resolved]
  - Electrolyte imbalance [Recovered/Resolved]
  - Dyspnoea exertional [Unknown]
  - Dermatitis contact [Not Recovered/Not Resolved]
  - Blood potassium decreased [Recovered/Resolved]
  - Catheter site inflammation [Unknown]
  - Limb injury [Recovered/Resolved]
  - Respiratory failure [Recovering/Resolving]
  - Diarrhoea [Not Recovered/Not Resolved]
  - Subdural haematoma [Recovering/Resolving]
  - Decreased appetite [Unknown]
  - Malaise [Unknown]
  - Pain in jaw [Unknown]

NARRATIVE: CASE EVENT DATE: 201711
